FAERS Safety Report 25226098 (Version 1)
Quarter: 2025Q2

REPORT INFORMATION
  Report Type: Spontaneous
  Country: US (occurrence: None)
  Receive Date: 20250422
  Receipt Date: 20250422
  Transmission Date: 20250716
  Serious: Yes (unspecified)
  Sender: FDA-CTU
  Company Number: None

PATIENT
  Age: 7 Year
  Sex: Male
  Weight: 26 kg

DRUGS (1)
  1. DUPIXENT [Suspect]
     Active Substance: DUPILUMAB
     Indication: Dermatitis atopic
     Dosage: OTHER FREQUENCY : EVERY 4 WEEKS;?
     Route: 058
     Dates: start: 20241119

REACTIONS (1)
  - Herpes simplex [None]

NARRATIVE: CASE EVENT DATE: 20250415
